FAERS Safety Report 5726504-7 (Version None)
Quarter: 2008Q2

REPORT INFORMATION
  Report Type: 
  Country: None (occurrence: None)
  Receive Date: 20080502
  Receipt Date: 20080422
  Transmission Date: 20081010
  Serious: Yes (Hospitalization, Disabling)
  Sender: FDA-Public Use
  Company Number: US-MERCK-0401USA01742

PATIENT
  Age: 60 Year
  Sex: Female

DRUGS (4)
  1. ZOCOR [Suspect]
     Indication: HYPERCHOLESTEROLAEMIA
     Route: 048
     Dates: start: 20040101, end: 20040101
  2. HYZAAR [Concomitant]
     Route: 048
  3. ZOLOFT [Concomitant]
     Route: 065
  4. ALPRAZOLAM [Concomitant]
     Route: 065

REACTIONS (3)
  - ABDOMINAL PAIN [None]
  - FIBROMYALGIA [None]
  - RHEUMATOID ARTHRITIS [None]
